FAERS Safety Report 9859169 (Version 1)
Quarter: 2014Q1

REPORT INFORMATION
  Report Type: Spontaneous
  Country: DE (occurrence: DE)
  Receive Date: 20140131
  Receipt Date: 20140131
  Transmission Date: 20141002
  Serious: Yes (Hospitalization)
  Sender: FDA-Public Use
  Company Number: DE-ACTELION-A-CH2014-93933

PATIENT
  Age: 41 Year
  Sex: Female
  Weight: 45 kg

DRUGS (5)
  1. FENTANYL [Concomitant]
     Indication: SYSTEMIC SCLEROSIS
     Dosage: UNK
     Dates: start: 20140115
  2. METAMIZOLE [Concomitant]
     Indication: SYSTEMIC SCLEROSIS
     Dosage: UNK
     Dates: start: 20140115
  3. TRACLEER [Suspect]
     Indication: SKIN ULCER
     Dosage: 125 MG, BID
     Route: 048
     Dates: start: 20101201
  4. METEX [Concomitant]
     Indication: SYSTEMIC SCLEROSIS
     Dosage: UNK
     Dates: start: 20140115
  5. DECORTIN H [Concomitant]
     Indication: SYSTEMIC SCLEROSIS
     Dosage: UNK
     Dates: start: 20140115

REACTIONS (6)
  - Skin ulcer [Recovered/Resolved]
  - Weight decreased [Not Recovered/Not Resolved]
  - General physical health deterioration [Not Recovered/Not Resolved]
  - Asthenia [Not Recovered/Not Resolved]
  - Cachexia [Not Recovered/Not Resolved]
  - Gastrointestinal disorder [Not Recovered/Not Resolved]
